FAERS Safety Report 9784793 (Version 1)
Quarter: 2013Q4

REPORT INFORMATION
  Report Type: Spontaneous
  Country: US (occurrence: US)
  Receive Date: 20131227
  Receipt Date: 20131227
  Transmission Date: 20140711
  Serious: Yes (Other)
  Sender: FDA-Public Use
  Company Number: US-JNJFOC-20131214739

PATIENT
  Age: 64 Year
  Sex: Female
  Weight: 73.47 kg

DRUGS (3)
  1. IBUPROFEN [Suspect]
     Route: 065
  2. IBUPROFEN [Suspect]
     Indication: PAIN
     Route: 065
  3. PREDNISONE [Suspect]
     Indication: POLYMYALGIA RHEUMATICA
     Route: 065

REACTIONS (1)
  - Vitreous detachment [Unknown]
